FAERS Safety Report 15195002 (Version 2)
Quarter: 2018Q3

REPORT INFORMATION
  Report Type: Spontaneous
  Country: US (occurrence: US)
  Receive Date: 20180725
  Receipt Date: 20180929
  Transmission Date: 20181010
  Serious: Yes (Other)
  Sender: FDA-Public Use
  Company Number: US-SA-2018SA129445

PATIENT
  Age: 65 Year
  Sex: Female
  Weight: 77 kg

DRUGS (13)
  1. CLONIDINE. [Concomitant]
     Active Substance: CLONIDINE
  2. LORAZEPAM. [Concomitant]
     Active Substance: LORAZEPAM
  3. CYTOXAN [Concomitant]
     Active Substance: CYCLOPHOSPHAMIDE
  4. NEOSAR [Concomitant]
     Active Substance: CYCLOPHOSPHAMIDE
     Dosage: UNK
     Route: 065
  5. ALDACTONE [Concomitant]
     Active Substance: SPIRONOLACTONE
  6. NEULASTA [Concomitant]
     Active Substance: PEGFILGRASTIM
  7. COMPAZINE [PROCHLORPERAZINE MALEATE] [Concomitant]
  8. TAXOTERE [Suspect]
     Active Substance: DOCETAXEL
     Dosage: 60 MG, UNK
     Route: 042
     Dates: start: 20080327, end: 20080327
  9. CLARITIN [CLARITHROMYCIN] [Concomitant]
     Active Substance: CLARITHROMYCIN
  10. ZOFRAN [ONDANSETRON] [Concomitant]
  11. TAXOTERE [Suspect]
     Active Substance: DOCETAXEL
     Indication: BREAST CANCER
     Dosage: 60 MG, UNK
     Route: 042
     Dates: start: 20071012, end: 20071012
  12. CARDIZEM [DILTIAZEM] [Concomitant]
  13. LUNESTA [Concomitant]
     Active Substance: ESZOPICLONE

REACTIONS (2)
  - Alopecia [Recovering/Resolving]
  - Psychological trauma [Unknown]

NARRATIVE: CASE EVENT DATE: 20071031
